FAERS Safety Report 22081369 (Version 1)
Quarter: 2023Q1

REPORT INFORMATION
  Report Type: Report from Study
  Country: US (occurrence: US)
  Receive Date: 20230309
  Receipt Date: 20230309
  Transmission Date: 20230418
  Serious: Yes (Hospitalization)
  Sender: FDA-Public Use
  Company Number: US-ACADIA PHARMACEUTICALS INC.-ACA-2023-PIM-000606

PATIENT
  Age: 73 Year
  Sex: Female

DRUGS (17)
  1. NUPLAZID [Suspect]
     Active Substance: PIMAVANSERIN TARTRATE
     Indication: Parkinson^s disease psychosis
     Dosage: 34 MILLIGRAM, QD
     Route: 048
  2. CARBIDOPA\LEVODOPA [Concomitant]
     Active Substance: CARBIDOPA\LEVODOPA
     Dosage: 25-100 MG
  3. RYTARY [Concomitant]
     Active Substance: CARBIDOPA\LEVODOPA
     Dosage: 36.25-145 MG Q HS
  4. MEMANTINE [Concomitant]
     Active Substance: MEMANTINE
     Dosage: 10 MILLIGRAM
  5. RIVASTIGMINE [Concomitant]
     Active Substance: RIVASTIGMINE
     Dosage: 9.5 MG
  6. OLANZAPINE [Concomitant]
     Active Substance: OLANZAPINE
     Dosage: 5 MILLIGRAM
  7. MIRTAZAPINE [Concomitant]
     Active Substance: MIRTAZAPINE
     Dosage: 15 MILLIGRAM
  8. TRAZODONE [Concomitant]
     Active Substance: TRAZODONE HYDROCHLORIDE
     Dosage: 100 MILLIGRAM
  9. NORVASC [Concomitant]
     Active Substance: AMLODIPINE BESYLATE
     Dosage: 10 MILLIGRAM
  10. ALLOPURINOL [Concomitant]
     Active Substance: ALLOPURINOL
     Dosage: 100 MILLIGRAM
  11. GLIPIZIDE [Concomitant]
     Active Substance: GLIPIZIDE
     Dosage: 10 MILLIGRAM
  12. MYRBETRIQ [Concomitant]
     Active Substance: MIRABEGRON
     Dosage: 25 MILLIGRAM
  13. MELATONIN [Concomitant]
     Active Substance: MELATONIN
     Dosage: 5 MILLIGRAM
  14. DOCUSATE [Concomitant]
     Active Substance: DOCUSATE
     Dosage: 100 MILLIGRAM
  15. SENNA LEAF [Concomitant]
     Active Substance: SENNA LEAF
     Dosage: 8.6 MG
  16. ACETAMINOPHEN [Concomitant]
     Active Substance: ACETAMINOPHEN
     Dosage: 325 MICROGRAM
  17. COLCHICINE [Concomitant]
     Active Substance: COLCHICINE
     Dosage: 0.6 MG

REACTIONS (5)
  - Urinary tract infection [Not Recovered/Not Resolved]
  - Blunted affect [Not Recovered/Not Resolved]
  - Moaning [Not Recovered/Not Resolved]
  - Fall [Not Recovered/Not Resolved]
  - Hallucination [Not Recovered/Not Resolved]

NARRATIVE: CASE EVENT DATE: 20230213
